FAERS Safety Report 19910341 (Version 2)
Quarter: 2021Q4

REPORT INFORMATION
  Report Type: Spontaneous
  Country: US (occurrence: US)
  Receive Date: 20211004
  Receipt Date: 20211110
  Transmission Date: 20220304
  Serious: No
  Sender: FDA-Public Use
  Company Number: US-ORGANON-O2109USA002321

PATIENT
  Age: 37 Year
  Sex: Female

DRUGS (1)
  1. NEXPLANON [Suspect]
     Active Substance: ETONOGESTREL
     Dosage: ONE EVERY THREE YEARS
     Route: 059
     Dates: start: 202002, end: 20210920

REACTIONS (3)
  - Implant site infection [Recovered/Resolved]
  - Implant site pruritus [Unknown]
  - Implant site irritation [Unknown]

NARRATIVE: CASE EVENT DATE: 20210201
